FAERS Safety Report 7808488-0 (Version None)
Quarter: 2011Q4

REPORT INFORMATION
  Report Type: 
  Country: None (occurrence: None)
  Receive Date: 20111011
  Receipt Date: 20111011
  Transmission Date: 20120403
  Serious: Yes (Hospitalization)
  Sender: FDA-Public Use
  Company Number: None

PATIENT
  Sex: Female
  Weight: 41.1 kg

DRUGS (7)
  1. PEG-L-ASPRAGINASE (PEGASPARGASE, ONCOSPAR) [Suspect]
     Dosage: 3200 IU
  2. CYTARABINE [Suspect]
     Dosage: 397.5 MG
  3. DOXORUBICIN HCL [Suspect]
     Dosage: 96 MG
  4. METHOTREXATE [Suspect]
     Dosage: 15 MG
  5. CYCLOPHOSPHAMIDE [Suspect]
     Dosage: 1300 MG
  6. VINCRISTINE SULFATE [Suspect]
     Dosage: 5.9 MG
  7. DEXAMETHASONE [Suspect]
     Dosage: 182 MG

REACTIONS (15)
  - ANAL FISSURE [None]
  - TOXICITY TO VARIOUS AGENTS [None]
  - HEADACHE [None]
  - MUSCULOSKELETAL STIFFNESS [None]
  - PAIN [None]
  - URINARY TRACT INFECTION BACTERIAL [None]
  - ARTHRALGIA [None]
  - CONSTIPATION [None]
  - PAIN IN EXTREMITY [None]
  - ODYNOPHAGIA [None]
  - INADEQUATE ANALGESIA [None]
  - CONVULSION [None]
  - ABDOMINAL PAIN UPPER [None]
  - KLEBSIELLA INFECTION [None]
  - PROCTALGIA [None]
